FAERS Safety Report 8428266-1 (Version None)
Quarter: 2012Q2

REPORT INFORMATION
  Report Type: 
  Country: None (occurrence: None)
  Receive Date: 20120611
  Receipt Date: 20120222
  Transmission Date: 20120825
  Serious: Yes (Hospitalization)
  Sender: FDA-Public Use
  Company Number: US-ASTRAZENECA-2012SE11797

PATIENT
  Age: 61 Year
  Sex: Female
  Weight: 77.1 kg

DRUGS (3)
  1. ALBUTEROL [Concomitant]
     Indication: EMPHYSEMA
     Route: 055
  2. PULMICORT [Suspect]
     Indication: EMPHYSEMA
     Route: 055
  3. PULMICORT [Suspect]
     Indication: CHRONIC OBSTRUCTIVE PULMONARY DISEASE
     Route: 055

REACTIONS (3)
  - MULTIPLE FRACTURES [None]
  - LARYNGITIS [None]
  - OFF LABEL USE [None]
